FAERS Safety Report 12846474 (Version 2)
Quarter: 2016Q4

REPORT INFORMATION
  Report Type: Spontaneous
  Country: IT (occurrence: IT)
  Receive Date: 20161014
  Receipt Date: 20161024
  Transmission Date: 20170207
  Serious: Yes (Hospitalization)
  Sender: FDA-Public Use
  Company Number: IT-SUN PHARMACEUTICAL INDUSTRIES LTD-2016RR-125908

PATIENT
  Age: 69 Year
  Sex: Male

DRUGS (3)
  1. PALONOSETRON [Concomitant]
     Active Substance: PALONOSETRON
     Indication: PRODUCT USED FOR UNKNOWN INDICATION
     Dosage: 250 MG
     Route: 042
  2. OXALIPLATINO SUN 5 MG/ML, CONCENTRATO PER SOLUZIONE PER INFUSIONE [Suspect]
     Active Substance: OXALIPLATIN
     Indication: ADENOCARCINOMA GASTRIC
     Dosage: 50 MG/M2 CYCLICAL
     Route: 042
     Dates: start: 20160914, end: 20160914
  3. DEXAMETHASONE. [Concomitant]
     Active Substance: DEXAMETHASONE
     Indication: PRODUCT USED FOR UNKNOWN INDICATION
     Dosage: 4 MG
     Route: 042

REACTIONS (4)
  - Rash [Recovered/Resolved]
  - Oxygen saturation decreased [Recovered/Resolved]
  - Device related sepsis [Recovered/Resolved]
  - Chills [Recovered/Resolved]

NARRATIVE: CASE EVENT DATE: 20160914
